FAERS Safety Report 18088480 (Version 1)
Quarter: 2020Q3

REPORT INFORMATION
  Report Type: Spontaneous
  Country: US (occurrence: US)
  Receive Date: 20200729
  Receipt Date: 20200729
  Transmission Date: 20201103
  Serious: No
  Sender: FDA-Public Use
  Company Number: US-TEVA-2020-US-1807476

PATIENT
  Sex: Female

DRUGS (1)
  1. KETOCONAZOLE TEVA [Suspect]
     Active Substance: KETOCONAZOLE
     Indication: FUNGAL SKIN INFECTION
     Route: 061

REACTIONS (2)
  - Drug ineffective [Unknown]
  - Peripheral swelling [Not Recovered/Not Resolved]
